FAERS Safety Report 25861218 (Version 1)
Quarter: 2025Q3

REPORT INFORMATION
  Report Type: Spontaneous
  Country: MX (occurrence: MX)
  Receive Date: 20250929
  Receipt Date: 20250929
  Transmission Date: 20251020
  Serious: Yes (Life-Threatening, Hospitalization, Other)
  Sender: NOVARTIS
  Company Number: MX-002147023-NVSC2025MX150412

PATIENT
  Age: 40 Year
  Sex: Male

DRUGS (3)
  1. BASILIXIMAB [Suspect]
     Active Substance: BASILIXIMAB
     Indication: Appendicitis
     Route: 065
  2. TACROLIMUS [Concomitant]
     Active Substance: TACROLIMUS
     Indication: Appendicitis
     Route: 065
  3. MYCOPHENOLATE MOFETIL [Concomitant]
     Active Substance: MYCOPHENOLATE MOFETIL
     Indication: Appendicitis
     Route: 065

REACTIONS (6)
  - Appendicitis [Unknown]
  - Necrosis [Unknown]
  - Peritoneal disorder [Unknown]
  - Peristalsis visible [Unknown]
  - Abdominal pain [Recovered/Resolved]
  - Renal atrophy [Unknown]
